FAERS Safety Report 14390841 (Version 1)
Quarter: 2018Q1

REPORT INFORMATION
  Report Type: Spontaneous
  Country: US (occurrence: US)
  Receive Date: 20180116
  Receipt Date: 20180116
  Transmission Date: 20180509
  Serious: Yes (Other)
  Sender: FDA-Public Use
  Company Number: US-GLENMARK PHARMACEUTICALS-2018GMK030589

PATIENT

DRUGS (1)
  1. LITHIUM. [Suspect]
     Active Substance: LITHIUM
     Indication: PRODUCT USED FOR UNKNOWN INDICATION
     Dosage: UNK
     Route: 065

REACTIONS (7)
  - Emotional disorder [Unknown]
  - General physical health deterioration [Unknown]
  - Bladder injury [Unknown]
  - Liver injury [Unknown]
  - Nephrogenic diabetes insipidus [Not Recovered/Not Resolved]
  - Renal injury [Unknown]
  - Mental disorder [Unknown]
